FAERS Safety Report 6812387-0 (Version None)
Quarter: 2010Q3

REPORT INFORMATION
  Report Type: 
  Country: None (occurrence: None)
  Receive Date: 20100701
  Receipt Date: 20100628
  Transmission Date: 20110219
  Serious: Yes (Death)
  Sender: FDA-Public Use
  Company Number: CA-CELGENEUS-028-20785-10060614

PATIENT
  Sex: Male

DRUGS (6)
  1. THALOMID [Suspect]
     Indication: MULTIPLE MYELOMA
     Route: 048
     Dates: start: 20041101
  2. THALOMID [Suspect]
     Dosage: 100-200MG
     Route: 048
     Dates: start: 20031101, end: 20040401
  3. THALOMID [Suspect]
     Route: 048
     Dates: start: 20040401, end: 20040801
  4. PAMIDRONATE DISODIUM [Concomitant]
     Indication: MULTIPLE MYELOMA
     Route: 051
     Dates: start: 20030101, end: 20090601
  5. WARFARIN SODIUM [Concomitant]
     Dosage: VARIABLE
     Route: 048
     Dates: start: 20040901, end: 20090601
  6. LANREOTIDE [Concomitant]
     Indication: PRODUCT USED FOR UNKNOWN INDICATION
     Route: 058
     Dates: start: 20090601

REACTIONS (1)
  - METASTATIC CARCINOID TUMOUR [None]
